FAERS Safety Report 8736471 (Version 2)
Quarter: 2012Q4

REPORT INFORMATION
  Report Type: Report from Study
  Country: AU (occurrence: AU)
  Receive Date: 20120822
  Receipt Date: 20120904
  Transmission Date: 20130627
  Serious: Yes (Death, Life-Threatening)
  Sender: FDA-Public Use
  Company Number: AU-ROCHE-1104961

PATIENT
  Sex: Male

DRUGS (1)
  1. AVASTIN [Suspect]
     Indication: GLIOBLASTOMA
     Route: 042

REACTIONS (3)
  - Death [Fatal]
  - Fatigue [Unknown]
  - Cerebral haemorrhage [Recovered/Resolved]
